FAERS Safety Report 19377310 (Version 4)
Quarter: 2023Q1

REPORT INFORMATION
  Report Type: Spontaneous
  Country: US (occurrence: US)
  Receive Date: 20210604
  Receipt Date: 20230302
  Transmission Date: 20230417
  Serious: No
  Sender: FDA-Public Use
  Company Number: US-PFIZER INC-2021601594

PATIENT
  Age: 74 Year
  Sex: Female
  Weight: 84.37 kg

DRUGS (3)
  1. IBRANCE [Suspect]
     Active Substance: PALBOCICLIB
     Indication: HER2 negative breast cancer
     Dosage: 125 MG, CYCLIC [125MG ONCE A DAY FOR 21 DAYS THEN OFF FOR 7 DAYS]
     Dates: start: 201712
  2. IBRANCE [Suspect]
     Active Substance: PALBOCICLIB
     Dosage: 125 MG, CYCLIC (21 TABLETS PER CYCLE AND CYCLE IS A 28 DAY CYCLE INCLUDING 7 DAYS OFF)
     Dates: start: 20171213
  3. LETROZOLE [Concomitant]
     Active Substance: LETROZOLE
     Indication: Hormone suppression therapy
     Dosage: 2.5 MG, EVERY DAY
     Dates: start: 20171107

REACTIONS (4)
  - Asthenia [Unknown]
  - Fatigue [Unknown]
  - Dizziness [Unknown]
  - Lung disorder [Recovering/Resolving]

NARRATIVE: CASE EVENT DATE: 20180501
